FAERS Safety Report 6879831-4 (Version None)
Quarter: 2010Q3

REPORT INFORMATION
  Report Type: 
  Country: None (occurrence: None)
  Receive Date: 20100728
  Receipt Date: 20100714
  Transmission Date: 20110219
  Serious: No
  Sender: FDA-Public Use
  Company Number: JP-ELI_LILLY_AND_COMPANY-JP201007003161

PATIENT
  Age: 32 Year
  Sex: Female

DRUGS (2)
  1. ZYPREXA [Suspect]
     Indication: SCHIZOPHRENIA, PARANOID TYPE
     Dosage: 10-30MG, DAILY (1/D)
     Route: 065
     Dates: start: 20090430, end: 20090919
  2. PHENOBARBITAL [Concomitant]
     Dosage: 30-90MG, DAILY (1/D)
     Route: 065
     Dates: start: 20090902, end: 20090918

REACTIONS (4)
  - FLUSHING [None]
  - PLATELET COUNT DECREASED [None]
  - PYREXIA [None]
  - WHITE BLOOD CELL COUNT DECREASED [None]
